FAERS Safety Report 4357483-5 (Version None)
Quarter: 2004Q2

REPORT INFORMATION
  Report Type: 
  Country: None (occurrence: None)
  Receive Date: 20040510
  Receipt Date: 20040423
  Transmission Date: 20050107
  Serious: Yes (Hospitalization)
  Sender: FDA-Public Use
  Company Number: S04-FRA-02012-01

PATIENT
  Age: 82 Year
  Sex: Female

DRUGS (6)
  1. EBIXA (MEMANTINE) [Suspect]
     Dosage: 20 MG QD PO
     Route: 048
     Dates: start: 20031015, end: 20040325
  2. MOTILIUM ^BYK GULDEN^ (DOMPERIDONE) [Suspect]
     Dosage: 12 MG TID PO
     Route: 048
     Dates: end: 20040325
  3. TIAPRIDAL (TIAPRIDE) [Suspect]
     Dates: end: 20040325
  4. ESOMEPRAZOLE [Suspect]
     Dosage: 20 MG QD PO
     Route: 048
     Dates: start: 20031121, end: 20040325
  5. CORDARONE [Suspect]
     Dosage: 200 MG QD PO
     Route: 048
     Dates: end: 20040325
  6. LASIX [Suspect]
     Dosage: 20 MG QD PO
     Route: 048
     Dates: start: 20040130, end: 20040325

REACTIONS (5)
  - FEBRILE NEUTROPENIA [None]
  - GENERAL PHYSICAL HEALTH DETERIORATION [None]
  - LUNG INFECTION [None]
  - SEPTIC SHOCK [None]
  - WHITE BLOOD CELL COUNT DECREASED [None]
